FAERS Safety Report 18228031 (Version 1)
Quarter: 2020Q3

REPORT INFORMATION
  Report Type: Spontaneous
  Country: US (occurrence: US)
  Receive Date: 20200903
  Receipt Date: 20200903
  Transmission Date: 20201103
  Serious: Yes (Other)
  Sender: FDA-Public Use
  Company Number: None

PATIENT
  Age: 83 Year
  Sex: Female

DRUGS (15)
  1. SUTENT [Concomitant]
     Active Substance: SUNITINIB MALATE
  2. METOPROLOL TARTRATE. [Concomitant]
     Active Substance: METOPROLOL TARTRATE
  3. CEFDINIR. [Concomitant]
     Active Substance: CEFDINIR
  4. LEVOTHYROXINE. [Concomitant]
     Active Substance: LEVOTHYROXINE
  5. IMATINIB MES [Suspect]
     Active Substance: IMATINIB MESYLATE
     Indication: SARCOMA
     Route: 048
     Dates: start: 20200414, end: 20200902
  6. ALPRAZOLAM. [Concomitant]
     Active Substance: ALPRAZOLAM
  7. CELEBREX [Concomitant]
     Active Substance: CELECOXIB
  8. FUROSEMIDE. [Concomitant]
     Active Substance: FUROSEMIDE
  9. LOSARTAN. [Concomitant]
     Active Substance: LOSARTAN
  10. CLOPIDOGREL [Concomitant]
     Active Substance: CLOPIDOGREL BISULFATE
  11. PRAVASTATIN. [Concomitant]
     Active Substance: PRAVASTATIN
  12. AMITRIPTYLINE [Concomitant]
     Active Substance: AMITRIPTYLINE
  13. OMEPRAZOLE. [Concomitant]
     Active Substance: OMEPRAZOLE
  14. FEROSUL [Concomitant]
     Active Substance: FERROUS SULFATE
  15. TRAZODONE [Concomitant]
     Active Substance: TRAZODONE HYDROCHLORIDE

REACTIONS (4)
  - Eye swelling [None]
  - Intestinal mass [None]
  - Swelling face [None]
  - Anal haemorrhage [None]
